FAERS Safety Report 5414640-4 (Version None)
Quarter: 2007Q3

REPORT INFORMATION
  Report Type: 
  Country: None (occurrence: None)
  Receive Date: 20070813
  Receipt Date: 20070803
  Transmission Date: 20080115
  Serious: Yes (Death, Other)
  Sender: FDA-Public Use
  Company Number: 013044

PATIENT
  Age: 52 Year
  Sex: Male

DRUGS (4)
  1. PRIALT [Suspect]
     Indication: CANCER PAIN
     Dosage: UG, ONCE/HOUR, INTRATHECAL, 0.04 UG, ONCE/HOUR, INTRATHECAL
     Route: 037
     Dates: start: 20060222
  2. BACLOFEN [Concomitant]
  3. CLONIDINE [Concomitant]
  4. DILAUDID [Concomitant]

REACTIONS (3)
  - HAEMATOPOIETIC NEOPLASM [None]
  - LUNG NEOPLASM MALIGNANT [None]
  - MYOCARDIAL INFARCTION [None]
